FAERS Safety Report 7292889-6 (Version None)
Quarter: 2011Q1

REPORT INFORMATION
  Report Type: 
  Country: None (occurrence: None)
  Receive Date: 20110215
  Receipt Date: 20110202
  Transmission Date: 20110831
  Serious: Yes (Hospitalization)
  Sender: FDA-Public Use
  Company Number: PHFR2011GB00491

PATIENT
  Sex: Male

DRUGS (4)
  1. LANSOPRAZOLE [Concomitant]
     Dosage: 20MG DAILY
     Route: 048
  2. HYOSCINE HBR HYT [Concomitant]
     Dosage: 600MG DAILY
     Route: 048
  3. AMISULPRIDE [Suspect]
     Dosage: 1200MG DAILY
     Route: 048
  4. CLOZARIL [Suspect]
     Indication: SCHIZOPHRENIA
     Dosage: 350MG DAILY
     Route: 048
     Dates: start: 20031111, end: 20110102

REACTIONS (11)
  - NEUROLEPTIC MALIGNANT SYNDROME [None]
  - GENERAL PHYSICAL HEALTH DETERIORATION [None]
  - BLOOD CREATINE PHOSPHOKINASE INCREASED [None]
  - MUSCLE RIGIDITY [None]
  - MENTAL IMPAIRMENT [None]
  - WHITE BLOOD CELL COUNT DECREASED [None]
  - NEUTROPHIL COUNT DECREASED [None]
  - HYPERHIDROSIS [None]
  - RENAL IMPAIRMENT [None]
  - SCHIZOPHRENIA, CATATONIC TYPE [None]
  - MUTISM [None]
